FAERS Safety Report 8897814 (Version 1)
Quarter: 2012Q4

REPORT INFORMATION
  Report Type: 
  Country: US (occurrence: US)
  Receive Date: 20121108
  Receipt Date: 20121108
  Transmission Date: 20130627
  Serious: No
  Sender: FDA-Public Use
  Company Number: US-AMGEN-USASP2012025042

PATIENT
  Age: 73 Year
  Sex: Male

DRUGS (16)
  1. ENBREL [Suspect]
     Indication: PSORIATIC ARTHROPATHY
     Dosage: 50 mg, qwk
     Dates: start: 201204
  2. LOVASTATIN [Concomitant]
     Dosage: UNK
  3. METFORMIN [Concomitant]
     Dosage: UNK mg, UNK
  4. ALLOPURINOL [Concomitant]
     Dosage: UNK mg, UNK
  5. PRADAXA [Concomitant]
     Dosage: UNK mg, UNK
  6. ADVIL                              /00044201/ [Concomitant]
     Dosage: UNK mg, UNK
  7. FOLIC ACID [Concomitant]
     Dosage: UNK mg, UNK
  8. BENADRYL                           /00000402/ [Concomitant]
     Dosage: UNK mg, UNK
  9. LORAZEPAM [Concomitant]
  10. DOVONEX [Concomitant]
  11. ASPIRIN [Concomitant]
  12. TRIAMCINOLONE                      /00031902/ [Concomitant]
  13. METHOTREXATE [Concomitant]
  14. VITAMIN D /00107901/ [Concomitant]
  15. GLIMEPIRIDE [Concomitant]
  16. TAMSULOSIN [Concomitant]

REACTIONS (1)
  - Injection site pain [Unknown]
